FAERS Safety Report 9399302 (Version 2)
Quarter: 2013Q3

REPORT INFORMATION
  Report Type: Spontaneous
  Country: JP (occurrence: None)
  Receive Date: 20130710
  Receipt Date: 20130725
  Transmission Date: 20140515
  Serious: Yes (Hospitalization)
  Sender: FDA-Public Use
  Company Number: TCI2013A04009

PATIENT
  Sex: 0

DRUGS (2)
  1. NESINA [Suspect]
     Indication: DIABETES MELLITUS
     Dosage: (6.25 MG, 1 IN 1 D)
     Route: 048
  2. GLUFAST [Suspect]
     Route: 048

REACTIONS (1)
  - Hypoglycaemic coma [None]
